FAERS Safety Report 13302719 (Version 2)
Quarter: 2017Q1

REPORT INFORMATION
  Report Type: Spontaneous
  Country: US (occurrence: US)
  Receive Date: 20170307
  Receipt Date: 20170328
  Transmission Date: 20170428
  Serious: Yes (Hospitalization, Other)
  Sender: FDA-Public Use
  Company Number: US-SEBELA IRELAND LIMITED-2017SEB00042

PATIENT
  Sex: Female
  Weight: 47.62 kg

DRUGS (15)
  1. AZELASTINE [Concomitant]
     Active Substance: AZELASTINE
     Dosage: 2 DOSAGE UNITS, 1X/DAY
     Dates: start: 20160516
  2. CALCIUM [Concomitant]
     Active Substance: CALCIUM
     Dosage: 1 TABLETS, 1X/DAY
     Route: 048
  3. EZOPICLONE [Concomitant]
     Active Substance: ESZOPICLONE
     Dosage: 2 MG, 1X/DAY
     Route: 048
     Dates: start: 20160617
  4. MIRALAX [Concomitant]
     Active Substance: POLYETHYLENE GLYCOL 3350
     Dosage: 17 G, 1X/DAY
     Route: 048
     Dates: start: 20140227
  5. VITAMIN B COMPLEX [Concomitant]
     Active Substance: CYANOCOBALAMIN\DEXPANTHENOL\NIACINAMIDE\PYRIDOXINE HYDROCHLORIDE\RIBOFLAVIN 5^-PHOSPHATE SODIUM\THIAMINE HYDROCHLORIDE\VITAMIN B COMPLEX
     Dosage: 1 TABLETS, 1X/DAY
     Route: 048
  6. PREMARIN [Concomitant]
     Active Substance: ESTROGENS, CONJUGATED
     Route: 048
  7. LEVOCETIRIZINE [Concomitant]
     Active Substance: LEVOCETIRIZINE
     Dosage: 5 MG, 1X/DAY
     Route: 048
     Dates: start: 20160719
  8. VITAMIN E [Concomitant]
     Active Substance: .ALPHA.-TOCOPHEROL
     Dosage: 400 U, 1X/DAY
     Route: 048
  9. PREDNISONE. [Suspect]
     Active Substance: PREDNISONE
     Indication: EOSINOPHILIC GRANULOMATOSIS WITH POLYANGIITIS
     Dosage: 10 MG, 1X/DAY
     Route: 048
     Dates: start: 20170206
  10. FLUTICASONE. [Concomitant]
     Active Substance: FLUTICASONE
     Dosage: 4 DOSAGE UNITS, 1X/DAY
     Dates: start: 20160516
  11. IMURAN [Suspect]
     Active Substance: AZATHIOPRINE
     Indication: EOSINOPHILIC GRANULOMATOSIS WITH POLYANGIITIS
     Dosage: 150 MG, 1X/DAY
     Route: 048
  12. ASMANEX [Concomitant]
     Active Substance: MOMETASONE FUROATE
     Dosage: 2 PUFFS, 2X/DAY
  13. AZELASTINE [Concomitant]
     Active Substance: AZELASTINE
     Dosage: 1 DOSAGE UNITS, 1X/DAY
     Dates: start: 20160516
  14. DAILY MULTIVITAMIN [Concomitant]
     Active Substance: VITAMINS
     Dosage: 1 TABLETS, 1X/DAY
     Route: 048
  15. MUPIROCIN. [Concomitant]
     Active Substance: MUPIROCIN
     Dosage: UNK UNK, 2X/DAY
     Route: 061
     Dates: start: 20170213

REACTIONS (7)
  - Increased tendency to bruise [Unknown]
  - Off label use [Unknown]
  - Pneumonia [Unknown]
  - Bone loss [Unknown]
  - Skin atrophy [Unknown]
  - Impaired healing [Unknown]
  - Bone density decreased [Unknown]

NARRATIVE: CASE EVENT DATE: 2012
